FAERS Safety Report 24231565 (Version 2)
Quarter: 2024Q3

REPORT INFORMATION
  Report Type: Spontaneous
  Country: FR (occurrence: FR)
  Receive Date: 20240821
  Receipt Date: 20240831
  Transmission Date: 20241017
  Serious: Yes (Death, Hospitalization, Other)
  Sender: AUROBINDO
  Company Number: FR-MYLANLABS-2024M1073838

PATIENT
  Age: 59 Year
  Sex: Female

DRUGS (5)
  1. VALGANCICLOVIR [Suspect]
     Active Substance: VALGANCICLOVIR
     Indication: Cytomegalovirus infection
     Dosage: UNK
     Route: 065
  2. VALGANCICLOVIR [Suspect]
     Active Substance: VALGANCICLOVIR
     Indication: Antiviral prophylaxis
  3. MARIBAVIR [Suspect]
     Active Substance: MARIBAVIR
     Indication: Cytomegalovirus infection
     Dosage: 400 MILLIGRAM, TWO TIMES A DAY
     Route: 065
  4. FOSCARNET [Suspect]
     Active Substance: FOSCARNET
     Indication: Cytomegalovirus infection
     Dosage: 45 MILLIGRAM/KILOGRAM (ON DAYS OF HAEMODIALYSIS)
     Route: 042
  5. FOSCARNET [Suspect]
     Active Substance: FOSCARNET
     Dosage: 90 MILLIGRAM/KILOGRAM
     Route: 042

REACTIONS (2)
  - Drug ineffective [Fatal]
  - Drug resistance [Unknown]
